FAERS Safety Report 14877485 (Version 1)
Quarter: 2018Q2

REPORT INFORMATION
  Report Type: Spontaneous
  Country: IL (occurrence: IL)
  Receive Date: 20180510
  Receipt Date: 20180510
  Transmission Date: 20180711
  Serious: Yes (Death, Hospitalization)
  Sender: FDA-Public Use
  Company Number: IL-IMPAX LABORATORIES, INC-2018-IPXL-01541

PATIENT
  Age: 51 Year
  Sex: Female

DRUGS (2)
  1. DOXYCYCLINE HYCLATE DELAYED RELEASE [Suspect]
     Active Substance: DOXYCYCLINE HYCLATE
     Indication: BOUTONNEUSE FEVER
     Dosage: UNK
     Route: 042
  2. CEFTRIAXONE. [Suspect]
     Active Substance: CEFTRIAXONE
     Indication: BOUTONNEUSE FEVER
     Dosage: EMPIRICALLY, UNK
     Route: 065

REACTIONS (4)
  - Device related infection [Fatal]
  - Multiple organ dysfunction syndrome [Unknown]
  - Pseudomonal bacteraemia [Fatal]
  - Purpura fulminans [Unknown]

NARRATIVE: CASE EVENT DATE: 2017
